FAERS Safety Report 25003145 (Version 2)
Quarter: 2025Q2

REPORT INFORMATION
  Report Type: Spontaneous
  Country: US (occurrence: US)
  Receive Date: 20250224
  Receipt Date: 20250409
  Transmission Date: 20250716
  Serious: Yes (Other)
  Sender: COOPERSURGICAL
  Company Number: US-COOPERSURGICAL, INC.-2025CPS001085

PATIENT
  Sex: Female
  Weight: 52.154 kg

DRUGS (1)
  1. PARAGARD T 380A [Suspect]
     Active Substance: COPPER
     Indication: Contraception
     Route: 015
     Dates: start: 20111223

REACTIONS (23)
  - Reproductive complication associated with device [Unknown]
  - Device breakage [Not Recovered/Not Resolved]
  - Foreign body in reproductive tract [Not Recovered/Not Resolved]
  - Pregnancy with contraceptive device [Recovered/Resolved]
  - Drug ineffective [Unknown]
  - Abortion spontaneous [Recovered/Resolved]
  - Depression [Not Recovered/Not Resolved]
  - Anxiety [Not Recovered/Not Resolved]
  - Paranoia [Not Recovered/Not Resolved]
  - Post-traumatic stress disorder [Unknown]
  - Emotional distress [Unknown]
  - Loss of libido [Unknown]
  - Vision blurred [Unknown]
  - Procedural pain [Unknown]
  - Procedural haemorrhage [Unknown]
  - Pain in extremity [Unknown]
  - Headache [Unknown]
  - Abnormal uterine bleeding [Unknown]
  - Device expulsion [Recovered/Resolved]
  - Dyspareunia [Unknown]
  - Muscle spasms [Unknown]
  - Pain [Unknown]
  - Pelvic pain [Unknown]

NARRATIVE: CASE EVENT DATE: 20210101
